FAERS Safety Report 4669715-4 (Version None)
Quarter: 2005Q2

REPORT INFORMATION
  Report Type: 
  Country: None (occurrence: None)
  Receive Date: 20050520
  Receipt Date: 20050513
  Transmission Date: 20051028
  Serious: Yes (Death)
  Sender: FDA-Public Use
  Company Number: 05-05-0831

PATIENT
  Sex: Male

DRUGS (11)
  1. FUROSEMIDE UNKNOWN [Suspect]
     Dosage: 80 MG AM
  2. BECLOMETHASONE DIPROPIONATE [Suspect]
  3. ALLOPURINOL [Suspect]
     Dosage: 200 MG
     Route: 050
  4. DIGOXIN [Suspect]
     Dosage: 250MG QD
  5. PANTOPRAZOLE UNKNOWN [Suspect]
     Dosage: 20MG
  6. PERINDOPRIL UNKNOWN [Suspect]
     Dosage: 4MG QD
  7. SIMVASTATIN [Suspect]
     Dosage: 40MG NIGHTLY
  8. WARFARIN SODIUM [Suspect]
  9. VENTOLIN [Suspect]
  10. PARACETAMOL [Suspect]
  11. SPIRIVA [Suspect]
     Dosage: OTHER
     Route: 050

REACTIONS (1)
  - AORTIC DISSECTION [None]
